FAERS Safety Report 7822980-4 (Version None)
Quarter: 2011Q4

REPORT INFORMATION
  Report Type: 
  Country: None (occurrence: None)
  Receive Date: 20111018
  Receipt Date: 20101022
  Transmission Date: 20120403
  Serious: No
  Sender: FDA-Public Use
  Company Number: US-ASTRAZENECA-2010SE50640

PATIENT
  Sex: Female

DRUGS (23)
  1. EFFEXOR XR [Concomitant]
     Route: 048
  2. LEVOTHYROXINE SODIUM [Concomitant]
     Route: 048
  3. ASPIRIN [Concomitant]
     Route: 048
  4. IPRATROPIUM BROMIDE AND ALBUTEROL SULFATE [Concomitant]
     Dosage: 0.5/3 MG PER 3 ML
  5. VERAPAMIL HCL [Concomitant]
     Route: 048
  6. VENTOLIN HFA [Concomitant]
     Dosage: 90 MCG 2 PUFFS Q4 TO 6 HR PRN
     Route: 055
  7. ERGOCALCIFEROL [Concomitant]
     Route: 048
  8. BRETHINE [Concomitant]
     Route: 048
  9. SIMVASTATIN [Concomitant]
     Route: 048
  10. BUMEX [Concomitant]
     Route: 048
  11. DYAZIDE [Concomitant]
     Dosage: 37.5/25 MG UNKNOWN FREQUENCY
     Route: 048
  12. SYMBICORT [Suspect]
     Indication: CHRONIC OBSTRUCTIVE PULMONARY DISEASE
     Dosage: 160/4.5 MCG 2 INHALATION BID
     Route: 055
     Dates: start: 20090101
  13. LASIX [Concomitant]
     Indication: OEDEMA
     Route: 048
  14. ADVAIR DISKUS 100/50 [Concomitant]
     Dosage: 250/50 MCG 1 PUFF BID
  15. QUINAPRIL [Concomitant]
     Route: 048
  16. ALBUTEROL [Concomitant]
     Dosage: 1 VIAL BY NEBULIZER 3 TO 4 DAILY AS DIRECTED
  17. LANOXIN [Concomitant]
     Route: 048
  18. PROAIR HFA [Concomitant]
  19. LORTAB [Concomitant]
     Dosage: 5/500 MG BID
     Route: 048
  20. O2 [Concomitant]
     Dosage: 2L IA NC CONTINOUS
  21. OMEPRAZOLE [Suspect]
     Route: 048
  22. LASIX [Concomitant]
     Route: 048
  23. SPIRIVA [Concomitant]
     Dosage: 18 MCG / 1 CAPSULE FOR INHALATION DAILY BY ROTAHALER BY MOUTH DAILY THRU INHALER

REACTIONS (6)
  - DYSPNOEA [None]
  - VITAMIN D DEFICIENCY [None]
  - ANXIETY [None]
  - DRY SKIN [None]
  - PAIN IN EXTREMITY [None]
  - OEDEMA PERIPHERAL [None]
